FAERS Safety Report 4526796-6 (Version None)
Quarter: 2004Q4

REPORT INFORMATION
  Report Type: 
  Country: None (occurrence: None)
  Receive Date: 20041213
  Receipt Date: 20041126
  Transmission Date: 20050328
  Serious: Yes (Hospitalization)
  Sender: FDA-Public Use
  Company Number: S04-FRA-07962-01

PATIENT
  Age: 93 Year
  Sex: Female

DRUGS (12)
  1. CITALOPRAM HYDROBROMIDE [Suspect]
     Dosage: 20 MG QD PO
     Route: 048
     Dates: end: 20041106
  2. LASIX [Suspect]
     Dosage: 20 MG QD PO
     Route: 048
     Dates: end: 20041106
  3. LASIX [Suspect]
     Dosage: 40 MG BID PO
     Route: 048
     Dates: end: 20041107
  4. LASIX [Suspect]
     Dosage: 40 MG QD PO
     Route: 048
     Dates: start: 20041108
  5. TEGRETOL [Suspect]
     Dosage: 200 MG TID PO
     Route: 048
     Dates: start: 20041016, end: 20041107
  6. LORAZEPAM [Concomitant]
  7. IMOVANE (ZOPICLONE) [Concomitant]
  8. ISOSORBIDE MONONITRATE [Concomitant]
  9. VASTAREL (TRIMETAZIDINE HYDROCHLORIDE) [Concomitant]
  10. FERROUS SULFATE TAB [Concomitant]
  11. ASPIRIN [Concomitant]
  12. CALCIPARINE [Concomitant]

REACTIONS (9)
  - BLOOD PRESSURE ABNORMAL [None]
  - CARDIOMEGALY [None]
  - DISORIENTATION [None]
  - DISTURBANCE IN ATTENTION [None]
  - DRUG INTERACTION [None]
  - ELECTROCARDIOGRAM ST SEGMENT ABNORMAL [None]
  - HYPONATRAEMIA [None]
  - PULMONARY OEDEMA [None]
  - RESPIRATORY RATE INCREASED [None]
